FAERS Safety Report 24722097 (Version 2)
Quarter: 2025Q1

REPORT INFORMATION
  Report Type: Spontaneous
  Country: US (occurrence: US)
  Receive Date: 20241211
  Receipt Date: 20250128
  Transmission Date: 20250408
  Serious: No
  Sender: INSUD PHARMA
  Company Number: US-INSUD PHARMA-2412US09274

PATIENT

DRUGS (2)
  1. SLYND [Suspect]
     Active Substance: DROSPIRENONE
     Indication: Heavy menstrual bleeding
     Route: 048
     Dates: start: 202411
  2. SLYND [Suspect]
     Active Substance: DROSPIRENONE
     Indication: Dysmenorrhoea

REACTIONS (4)
  - Intermenstrual bleeding [Unknown]
  - Heavy menstrual bleeding [Recovering/Resolving]
  - Dysmenorrhoea [Recovering/Resolving]
  - Drug effective for unapproved indication [Unknown]

NARRATIVE: CASE EVENT DATE: 20240101
